FAERS Safety Report 8251853-0 (Version None)
Quarter: 2012Q2

REPORT INFORMATION
  Report Type: 
  Country: None (occurrence: None)
  Receive Date: 20120402
  Receipt Date: 20120330
  Transmission Date: 20120825
  Serious: Yes (Hospitalization)
  Sender: FDA-Public Use
  Company Number: US-ROXANE LABORATORIES, INC.-2012-RO-00926RO

PATIENT
  Age: 62 Year
  Sex: Female
  Weight: 97 kg

DRUGS (18)
  1. SALAGEN [Concomitant]
     Route: 048
     Dates: start: 20050419
  2. FOLIC ACID [Concomitant]
     Route: 048
     Dates: start: 20031008
  3. NEXIUM [Concomitant]
     Route: 048
     Dates: start: 20070615
  4. VITAMIN D [Concomitant]
     Route: 048
     Dates: start: 20080919
  5. MOBIC [Concomitant]
     Indication: RHEUMATOID ARTHRITIS
     Dosage: 15 MG
     Route: 048
     Dates: start: 20031215
  6. MULTI-VITAMIN [Concomitant]
     Route: 048
     Dates: start: 20090130
  7. DITROPAN [Concomitant]
     Route: 048
     Dates: start: 20101001
  8. STUDY DRUG [Suspect]
     Indication: RHEUMATOID ARTHRITIS
     Dosage: 20 MG
     Route: 048
     Dates: start: 20080102, end: 20120130
  9. LYRICA [Concomitant]
     Route: 048
     Dates: start: 20070730
  10. VESICARE [Concomitant]
     Route: 048
     Dates: start: 20080102
  11. AMLODIPINE [Concomitant]
     Route: 048
     Dates: start: 20110614
  12. VITAMIN B-12 [Concomitant]
     Route: 048
     Dates: start: 20110915
  13. FLUTICASONE FUROATE [Concomitant]
     Route: 045
     Dates: start: 20110921
  14. PREDNISONE TAB [Suspect]
     Route: 048
     Dates: start: 20100624
  15. HYDROCODONE BITARTRATE [Concomitant]
     Route: 048
     Dates: start: 20081119
  16. ASCORBIC ACID [Concomitant]
     Route: 048
     Dates: start: 20090130
  17. METHOTREXATE [Concomitant]
     Indication: RHEUMATOID ARTHRITIS
     Route: 058
     Dates: start: 20060201
  18. LOSARTAN POTASSIUM AND HYDROCHLOROTHIAZIDE [Concomitant]
     Route: 048
     Dates: start: 20110102

REACTIONS (1)
  - PNEUMONIA [None]
